FAERS Safety Report 15646193 (Version 5)
Quarter: 2023Q4

REPORT INFORMATION
  Report Type: Spontaneous
  Country: US (occurrence: US)
  Receive Date: 20181122
  Receipt Date: 20231207
  Transmission Date: 20240109
  Serious: Yes (Hospitalization, Other)
  Sender: FDA-Public Use
  Company Number: US-BIOGENIDEC-2015BI119772

PATIENT
  Age: 62 Year
  Sex: Male

DRUGS (8)
  1. AVONEX [Suspect]
     Active Substance: INTERFERON BETA-1A
     Indication: Multiple sclerosis
     Route: 050
     Dates: start: 19991201
  2. AVONEX [Suspect]
     Active Substance: INTERFERON BETA-1A
  3. AVONEX [Suspect]
     Active Substance: INTERFERON BETA-1A
  4. AVONEX [Suspect]
     Active Substance: INTERFERON BETA-1A
  5. AVONEX PEN [Suspect]
     Active Substance: INTERFERON BETA-1A
     Indication: Multiple sclerosis
     Route: 050
     Dates: start: 2001
  6. AVONEX PEN [Suspect]
     Active Substance: INTERFERON BETA-1A
  7. AVONEX PEN [Suspect]
     Active Substance: INTERFERON BETA-1A
  8. AVONEX PEN [Suspect]
     Active Substance: INTERFERON BETA-1A

REACTIONS (5)
  - Craniocerebral injury [Unknown]
  - Road traffic accident [Recovered/Resolved]
  - Muscle rupture [Recovered/Resolved]
  - Ligament sprain [Recovered/Resolved]
  - Feeling abnormal [Not Recovered/Not Resolved]

NARRATIVE: CASE EVENT DATE: 20150701
